FAERS Safety Report 5210300-3 (Version None)
Quarter: 2007Q1

REPORT INFORMATION
  Report Type: 
  Country: None (occurrence: None)
  Receive Date: 20070111
  Receipt Date: 20061229
  Transmission Date: 20070707
  Serious: Yes (Other)
  Sender: FDA-Public Use
  Company Number: URSO-2006-057

PATIENT
  Age: 56 Year
  Sex: Male

DRUGS (1)
  1. URSO 250 [Suspect]
     Indication: HEPATIC FUNCTION ABNORMAL
     Dosage: 600MG QD PO
     Route: 048
     Dates: start: 20061101

REACTIONS (3)
  - BLOOD IMMUNOGLOBULIN E INCREASED [None]
  - EOSINOPHIL COUNT INCREASED [None]
  - PLEURAL EFFUSION [None]
